FAERS Safety Report 15903852 (Version 2)
Quarter: 2019Q1

REPORT INFORMATION
  Report Type: Report from Study
  Country: CA (occurrence: CA)
  Receive Date: 20190204
  Receipt Date: 20190321
  Transmission Date: 20190417
  Serious: Yes (Other)
  Sender: FDA-Public Use
  Company Number: CA-BRISTOL-MYERS SQUIBB COMPANY-BMS-2018-109982

PATIENT
  Age: 24 Year
  Sex: Female

DRUGS (1)
  1. ABATACEPT [Suspect]
     Active Substance: ABATACEPT
     Indication: RHEUMATOID ARTHRITIS
     Dosage: 750 MG, Q4WK
     Route: 042
     Dates: start: 20181119, end: 20190308

REACTIONS (7)
  - Influenza [Unknown]
  - Joint swelling [Unknown]
  - Dizziness [Recovered/Resolved]
  - Product dose omission [Unknown]
  - Seizure [Unknown]
  - Drug ineffective [Not Recovered/Not Resolved]
  - Rheumatoid arthritis [Unknown]

NARRATIVE: CASE EVENT DATE: 20181119
